FAERS Safety Report 9915084 (Version 2)
Quarter: 2014Q1

REPORT INFORMATION
  Report Type: Spontaneous
  Country: BR (occurrence: BR)
  Receive Date: 20140220
  Receipt Date: 20140321
  Transmission Date: 20141002
  Serious: Yes (Other)
  Sender: FDA-Public Use
  Company Number: PHHY2014BR021114

PATIENT
  Age: 71 Year
  Sex: Male

DRUGS (5)
  1. TEGRETOL [Suspect]
     Indication: NECK PAIN
     Dosage: TWO OR THREE TABLETS A DAY
     Route: 048
  2. TEGRETOL [Suspect]
     Indication: OFF LABEL USE
  3. OLCADIL [Concomitant]
     Indication: NECK INJURY
     Dosage: 1 DF, DAILY
     Route: 048
  4. OLCADIL [Concomitant]
     Indication: SPINAL MENINGEAL CYST
  5. PURAN T4 [Concomitant]
     Indication: THYROID THERAPY
     Dosage: 1 DF, DAILY
     Route: 048

REACTIONS (7)
  - Cholelithiasis [Recovered/Resolved]
  - Gastritis [Recovering/Resolving]
  - Neck pain [Recovered/Resolved]
  - Hypothyroidism [Not Recovered/Not Resolved]
  - Blood thyroid stimulating hormone increased [Not Recovered/Not Resolved]
  - Diarrhoea [Recovering/Resolving]
  - Dyskinesia [Not Recovered/Not Resolved]
